FAERS Safety Report 8543517-0 (Version None)
Quarter: 2012Q3

REPORT INFORMATION
  Report Type: 
  Country: None (occurrence: None)
  Receive Date: 20120727
  Receipt Date: 20120723
  Transmission Date: 20120928
  Serious: Yes (Death)
  Sender: FDA-Public Use
  Company Number: US-CELGENEUS-163-21880-12072676

PATIENT
  Sex: Male

DRUGS (15)
  1. ALEVE [Concomitant]
     Route: 065
  2. PLAVIX [Concomitant]
     Route: 065
  3. LEVOXYL [Concomitant]
     Route: 065
  4. REVLIMID [Suspect]
     Indication: MULTIPLE MYELOMA
     Dosage: 25 MILLIGRAM
     Route: 048
     Dates: start: 20110614, end: 20120101
  5. ADVIL [Concomitant]
     Route: 065
  6. METOPROLOL SUCCINATE [Concomitant]
     Route: 065
  7. MULTI-VITAMINS [Concomitant]
     Route: 065
  8. NEURONTIN [Concomitant]
     Route: 065
  9. ASPIRIN [Concomitant]
     Route: 065
  10. DEXAMETHASONE [Concomitant]
     Route: 065
  11. ZOMETA [Concomitant]
     Route: 065
  12. IMDUR [Concomitant]
     Route: 065
  13. PRILOSEC [Concomitant]
     Route: 065
  14. CRESTOR [Concomitant]
     Route: 065
  15. LISINOPRIL [Concomitant]
     Route: 065

REACTIONS (1)
  - DEATH [None]
